FAERS Safety Report 9381038 (Version 2)
Quarter: 2013Q3

REPORT INFORMATION
  Report Type: Spontaneous
  Country: US (occurrence: US)
  Receive Date: 20130703
  Receipt Date: 20130723
  Transmission Date: 20140515
  Serious: Yes (Hospitalization)
  Sender: FDA-Public Use
  Company Number: US-BIOGENIDEC-2013BI057841

PATIENT
  Age: 56 Year
  Sex: Female

DRUGS (1)
  1. AVONEX [Suspect]
     Indication: MULTIPLE SCLEROSIS
     Route: 030
     Dates: start: 201205

REACTIONS (7)
  - Coronary artery disease [Recovered/Resolved]
  - Intrapericardial thrombosis [Unknown]
  - Pericardial effusion [Unknown]
  - Pneumonia [Unknown]
  - Dyspnoea [Recovered/Resolved]
  - Chest pain [Unknown]
  - Heart rate increased [Unknown]
